FAERS Safety Report 9883880 (Version 2)
Quarter: 2014Q2

REPORT INFORMATION
  Report Type: Spontaneous
  Country: US (occurrence: US)
  Receive Date: 20140210
  Receipt Date: 20140530
  Transmission Date: 20141212
  Serious: Yes (Hospitalization)
  Sender: FDA-Public Use
  Company Number: US-BAYER-2014-019749

PATIENT
  Age: 29 Year
  Sex: Female
  Weight: 77.1 kg

DRUGS (18)
  1. YASMIN [Suspect]
  2. YAZ [Suspect]
  3. SPIRONOLACTONE [Concomitant]
     Dosage: 100 MG, UNK
  4. GLUCOPHAGE [Concomitant]
     Dosage: 1500 MG, UNK
  5. GLUCOPHAGE [Concomitant]
  6. EFFEXOR [Concomitant]
  7. ADIPEX [Concomitant]
  8. SULFAMETHOXAZOLE/TRIMETHOPRIM [Concomitant]
  9. HYDROCODONE W/APAP [Concomitant]
     Dosage: 10/660
  10. LEXAPRO [Concomitant]
  11. LIDODERM [Concomitant]
  12. METFORMIN [Concomitant]
  13. CHANTIX [Concomitant]
  14. VENLAFAXINE [Concomitant]
  15. OXYCODONE [Concomitant]
  16. MOTRIN [Concomitant]
  17. PHENERGAN [Concomitant]
  18. BACTRIM [Concomitant]

REACTIONS (1)
  - Pulmonary embolism [Recovered/Resolved]
